FAERS Safety Report 4702252-7 (Version None)
Quarter: 2005Q2

REPORT INFORMATION
  Report Type: 
  Country: None (occurrence: None)
  Receive Date: 20050629
  Receipt Date: 20050324
  Transmission Date: 20051028
  Serious: No
  Sender: FDA-Public Use
  Company Number: US-BRISTOL-MYERS SQUIBB COMPANY-12910741

PATIENT

DRUGS (3)
  1. REYATAZ [Suspect]
  2. GEMFIBROZIL [Concomitant]
  3. OMEPRAZOLE [Concomitant]

REACTIONS (1)
  - JAUNDICE [None]
